FAERS Safety Report 9735698 (Version 1)
Quarter: 2013Q4

REPORT INFORMATION
  Report Type: Spontaneous
  Country: US (occurrence: None)
  Receive Date: 20131204
  Receipt Date: 20131204
  Transmission Date: 20140711
  Serious: Yes (Hospitalization)
  Sender: FDA-Public Use
  Company Number: SYM-2013-10881

PATIENT
  Age: 39 Year
  Sex: Male

DRUGS (1)
  1. XENAZINE [Suspect]
     Indication: CHOREA
     Dosage: 50 MG, 3 IN 1 D, ORAL
     Route: 048
     Dates: start: 201307

REACTIONS (2)
  - Movement disorder [None]
  - Condition aggravated [None]
